FAERS Safety Report 21484616 (Version 1)
Quarter: 2022Q4

REPORT INFORMATION
  Report Type: Spontaneous
  Country: US (occurrence: None)
  Receive Date: 20221020
  Receipt Date: 20221020
  Transmission Date: 20230112
  Serious: Yes (Other)
  Sender: FDA-Public Use
  Company Number: US-MICRO LABS LIMITED-ML2022-05200

PATIENT

DRUGS (8)
  1. BUPROPION [Suspect]
     Active Substance: BUPROPION
  2. CLONAZEPAM [Suspect]
     Active Substance: CLONAZEPAM
  3. DULOXETINE [Suspect]
     Active Substance: DULOXETINE
  4. PREGABALIN [Suspect]
     Active Substance: PREGABALIN
  5. MIDAZOLAM [Suspect]
     Active Substance: MIDAZOLAM
  6. PROPOFOL [Suspect]
     Active Substance: PROPOFOL
  7. FENTANYL [Suspect]
     Active Substance: FENTANYL
     Dosage: 250 UG
  8. METHADONE [Suspect]
     Active Substance: METHADONE HYDROCHLORIDE
     Route: 042

REACTIONS (1)
  - Respiratory depression [Unknown]
